FAERS Safety Report 23835890 (Version 1)
Quarter: 2024Q2

REPORT INFORMATION
  Report Type: Spontaneous
  Country: US (occurrence: None)
  Receive Date: 20240507
  Receipt Date: 20240507
  Transmission Date: 20240716
  Serious: Yes (Hospitalization)
  Sender: FDA-Public Use
  Company Number: None

PATIENT
  Sex: Male

DRUGS (2)
  1. VALTOCO [Suspect]
     Active Substance: DIAZEPAM
     Indication: Focal dyscognitive seizures
     Dosage: FREQUENCY : AS DIRECTED;?OTHER ROUTE : INTRANASAL;?
     Route: 050
     Dates: start: 202312
  2. EPIDIOLEX ORAL SOLN [Concomitant]

REACTIONS (1)
  - Drug ineffective [None]
